FAERS Safety Report 15689852 (Version 3)
Quarter: 2022Q2

REPORT INFORMATION
  Report Type: Spontaneous
  Country: US (occurrence: US)
  Receive Date: 20181205
  Receipt Date: 20220524
  Transmission Date: 20220720
  Serious: No
  Sender: FDA-Public Use
  Company Number: US-PFIZER INC-2017398804

PATIENT
  Age: 74 Year
  Sex: Male
  Weight: 82 kg

DRUGS (5)
  1. SOMAVERT [Suspect]
     Active Substance: PEGVISOMANT
     Indication: Acromegaly
     Dosage: 20 MG, DAILY
     Route: 058
     Dates: start: 2016
  2. SOMAVERT [Suspect]
     Active Substance: PEGVISOMANT
     Indication: Gigantism
     Dosage: 20 MG, 5 DAYS A WEEK
     Route: 058
     Dates: start: 2016
  3. SOMAVERT [Suspect]
     Active Substance: PEGVISOMANT
     Dosage: 20 MG, 6 DAYS A WEEK
  4. SOMAVERT [Suspect]
     Active Substance: PEGVISOMANT
     Dosage: UNK (SOMAVERT 20 MG KIT (1=1))
     Dates: start: 20161213
  5. FORTEO [Concomitant]
     Active Substance: TERIPARATIDE
     Indication: Mineral supplementation
     Dosage: 20 UG, DAILY
     Route: 058
     Dates: start: 2016

REACTIONS (2)
  - Insulin-like growth factor increased [Unknown]
  - Off label use [Unknown]

NARRATIVE: CASE EVENT DATE: 20170120
